FAERS Safety Report 5638096-1 (Version None)
Quarter: 2008Q1

REPORT INFORMATION
  Report Type: 
  Country: None (occurrence: None)
  Receive Date: 20080222
  Receipt Date: 20080222
  Transmission Date: 20080703
  Serious: No
  Sender: FDA-Public Use
  Company Number: None

PATIENT
  Age: 46 Year
  Sex: Female
  Weight: 73.4827 kg

DRUGS (1)
  1. ALLI [Suspect]
     Indication: WEIGHT CONTROL
     Dosage: 1 PILL BEFOR EACH MEAL 3 TIMES A DAY
     Dates: start: 20080217, end: 20080219

REACTIONS (1)
  - PRURITUS GENERALISED [None]
